FAERS Safety Report 7887095-8 (Version None)
Quarter: 2011Q4

REPORT INFORMATION
  Report Type: 
  Country: None (occurrence: None)
  Receive Date: 20111102
  Receipt Date: 20110714
  Transmission Date: 20120403
  Serious: No
  Sender: FDA-Public Use
  Company Number: US-AMGEN-KDL372159

PATIENT
  Age: 43 Year
  Sex: Female

DRUGS (2)
  1. ENBREL [Suspect]
     Indication: RHEUMATOID ARTHRITIS
     Dosage: 50 MG, QWK
     Route: 058
  2. ENBREL [Suspect]
     Dates: start: 19990101

REACTIONS (7)
  - INJECTION SITE URTICARIA [None]
  - IMPAIRED HEALING [None]
  - SINUSITIS [None]
  - HEADACHE [None]
  - RHEUMATOID ARTHRITIS [None]
  - BRONCHITIS [None]
  - INJECTION SITE PAIN [None]
